FAERS Safety Report 9287742 (Version 1)
Quarter: 2013Q2

REPORT INFORMATION
  Report Type: Spontaneous
  Country: BR (occurrence: BR)
  Receive Date: 20130514
  Receipt Date: 20130514
  Transmission Date: 20140414
  Serious: Yes (Death)
  Sender: FDA-Public Use
  Company Number: BR-JNJFOC-20130501578

PATIENT
  Age: 56 Year
  Sex: Male

DRUGS (2)
  1. TYLENOL [Suspect]
     Route: 065
  2. TYLENOL [Suspect]
     Indication: DENGUE FEVER
     Route: 065

REACTIONS (2)
  - Dyspnoea [Unknown]
  - Death [Fatal]
